FAERS Safety Report 7269926-8 (Version None)
Quarter: 2010Q4

REPORT INFORMATION
  Report Type: 
  Country: None (occurrence: None)
  Receive Date: 20101130
  Receipt Date: 20091202
  Transmission Date: 20110411
  Serious: Yes (Hospitalization, Other)
  Sender: FDA-Public Use
  Company Number: 2009-189323-NL

PATIENT
  Age: 35 Year
  Sex: Female
  Weight: 68 kg

DRUGS (19)
  1. NUVARING [Suspect]
     Indication: CONTRACEPTION
     Dates: start: 20041201, end: 20060301
  2. NADOLOL [Concomitant]
  3. ATARAX [Concomitant]
  4. VALIUM [Concomitant]
  5. DARVOCET [Concomitant]
  6. CLOBETASOL PROPIONATE [Concomitant]
  7. FLUTICASONE PROPIONATE [Concomitant]
  8. ESCITALOPRAM OXALATE [Concomitant]
  9. LORATADINE [Concomitant]
  10. TRAZODONE HCL [Concomitant]
  11. HYDROXYZINE HCL [Concomitant]
  12. GUAIFENESIN DM [Concomitant]
  13. SINGULAIR [Concomitant]
  14. FLEXERIL [Concomitant]
  15. KEFLEX [Concomitant]
  16. ULTRAVATE [Concomitant]
  17. LEXAPRO [Concomitant]
  18. PROVERA [Concomitant]
  19. TRIAMCINOLONE [Concomitant]

REACTIONS (8)
  - BREAST MASS [None]
  - CHEST PAIN [None]
  - DRY EYE [None]
  - GALACTORRHOEA [None]
  - INSOMNIA [None]
  - LIGAMENT SPRAIN [None]
  - PULMONARY EMBOLISM [None]
  - PULMONARY INFARCTION [None]
